FAERS Safety Report 9455859 (Version 1)
Quarter: 2013Q3

REPORT INFORMATION
  Report Type: Spontaneous
  Country: NO (occurrence: NO)
  Receive Date: 20130813
  Receipt Date: 20130813
  Transmission Date: 20140515
  Serious: Yes (Hospitalization)
  Sender: FDA-Public Use
  Company Number: NO-ELI_LILLY_AND_COMPANY-NO201308001181

PATIENT
  Age: 67 Year
  Sex: Male

DRUGS (2)
  1. ZYPADHERA [Suspect]
     Indication: BIPOLAR DISORDER
     Dosage: 210 MG, UNKNOWN
     Route: 030
     Dates: start: 200903
  2. MAREVAN [Concomitant]
     Dosage: UNK, OTHER: 16.5 TABLETS PER WEEK (TREATMENT DURATION: YEAR)
     Route: 048
     Dates: start: 201207

REACTIONS (5)
  - Drug level increased [Recovered/Resolved]
  - Hypoaesthesia [Recovered/Resolved]
  - Fatigue [Recovered/Resolved]
  - Dizziness [Recovered/Resolved]
  - Dysarthria [Recovered/Resolved]
